FAERS Safety Report 5890101-3 (Version None)
Quarter: 2008Q3

REPORT INFORMATION
  Report Type: 
  Country: None (occurrence: None)
  Receive Date: 20080919
  Receipt Date: 20080902
  Transmission Date: 20090109
  Serious: No
  Sender: FDA-Public Use
  Company Number: US-B.I. PHARMACEUTICALS,INC./RIDGEFIELD-2008-BP-13960BP

PATIENT
  Sex: Female

DRUGS (2)
  1. COMBIVENT [Suspect]
     Indication: BRONCHITIS CHRONIC
     Dosage: 8PUF
     Route: 055
     Dates: start: 20080827
  2. COMBIVENT [Suspect]
     Route: 055
     Dates: start: 20020101, end: 20080801

REACTIONS (4)
  - BRONCHITIS [None]
  - DYSPNOEA [None]
  - NASAL CONGESTION [None]
  - VISION BLURRED [None]
